FAERS Safety Report 10501977 (Version 1)
Quarter: 2014Q4

REPORT INFORMATION
  Report Type: Spontaneous
  Country: DE (occurrence: DE)
  Receive Date: 20141007
  Receipt Date: 20141007
  Transmission Date: 20150528
  Serious: Yes (Other)
  Sender: FDA-Public Use
  Company Number: PHHY2014DE128427

PATIENT
  Age: 69 Year
  Sex: Female

DRUGS (4)
  1. RITUXIMAB [Suspect]
     Active Substance: RITUXIMAB
     Dosage: 1 MG, UNK
     Route: 031
  2. METHOTREXATE [Suspect]
     Active Substance: METHOTREXATE
     Dosage: 0.4 MG, UNK
  3. PREDNISOLONE. [Concomitant]
     Active Substance: PREDNISOLONE
     Dosage: 1 MG/KG, Q2H
  4. TIMOLOL + DORZOLAMIDE [Concomitant]

REACTIONS (5)
  - Intraocular pressure increased [Recovering/Resolving]
  - Hyphaema [Recovered/Resolved]
  - Corneal deposits [Unknown]
  - Eye disorder [Unknown]
  - Open angle glaucoma [Unknown]
